FAERS Safety Report 7216319-5 (Version None)
Quarter: 2011Q1

REPORT INFORMATION
  Report Type: 
  Country: None (occurrence: None)
  Receive Date: 20110107
  Receipt Date: 20101231
  Transmission Date: 20110831
  Serious: Yes (Hospitalization)
  Sender: FDA-Public Use
  Company Number: ES-CEPHALON-2011000102

PATIENT
  Sex: Male

DRUGS (5)
  1. TREANDA [Suspect]
     Indication: EXTRANODAL MARGINAL ZONE B-CELL LYMPHOMA (MALT TYPE)
     Route: 041
     Dates: start: 20100809
  2. TRAMADOL [Concomitant]
  3. GABAPENTINE [Concomitant]
  4. PARACETAMOL [Concomitant]
  5. RITUXIMAB [Suspect]
     Indication: EXTRANODAL MARGINAL ZONE B-CELL LYMPHOMA (MALT TYPE)
     Route: 042
     Dates: start: 20100809

REACTIONS (1)
  - RESPIRATORY TRACT INFECTION [None]
